FAERS Safety Report 20119899 (Version 1)
Quarter: 2021Q4

REPORT INFORMATION
  Report Type: Spontaneous
  Country: CA (occurrence: CA)
  Receive Date: 20211126
  Receipt Date: 20211126
  Transmission Date: 20220303
  Serious: Yes (Other)
  Sender: FDA-Public Use
  Company Number: CA-SLATE RUN PHARMACEUTICALS-21CA000799

PATIENT

DRUGS (6)
  1. AZITHROMYCIN [Suspect]
     Active Substance: AZITHROMYCIN
     Indication: Maternal exposure timing unspecified
     Dosage: UNK
  2. OXYGEN [Concomitant]
     Active Substance: OXYGEN
     Indication: Maternal exposure timing unspecified
     Dosage: 4 UNK
  3. OXYGEN [Concomitant]
     Active Substance: OXYGEN
     Dosage: 3 UNK
  4. UNSPECIFIED INGREDIENT [Concomitant]
     Active Substance: UNSPECIFIED INGREDIENT
     Indication: Maternal exposure timing unspecified
  5. CEFTRIAXONE [Concomitant]
     Active Substance: CEFTRIAXONE
     Indication: Maternal exposure timing unspecified
     Dosage: 2 GRAM, QD
  6. DALTEPARIN [Concomitant]
     Active Substance: DALTEPARIN
     Indication: Maternal exposure timing unspecified
     Dosage: 5000 INTERNATIONAL UNIT, BID

REACTIONS (3)
  - Foetal malpresentation [Unknown]
  - Premature baby [Unknown]
  - Foetal exposure during pregnancy [Unknown]
